FAERS Safety Report 17524833 (Version 4)
Quarter: 2020Q3

REPORT INFORMATION
  Report Type: Spontaneous
  Country: DE (occurrence: DE)
  Receive Date: 20200310
  Receipt Date: 20200905
  Transmission Date: 20201102
  Serious: Yes (Other)
  Sender: FDA-Public Use
  Company Number: NVSC2020DE065847

PATIENT
  Age: 32 Year
  Sex: Female

DRUGS (1)
  1. KYMRIAH [Suspect]
     Active Substance: TISAGENLECLEUCEL
     Indication: DIFFUSE LARGE B-CELL LYMPHOMA RECURRENT
     Dosage: 2.90373 X 106 CELLS/KG BODY WEIGHT, ONCE/SINGLE
     Route: 065
     Dates: start: 201910, end: 201910

REACTIONS (14)
  - Headache [Recovered/Resolved]
  - Febrile neutropenia [Recovered/Resolved]
  - Neck pain [Recovered/Resolved]
  - Myalgia [Recovered/Resolved]
  - Diffuse large B-cell lymphoma recurrent [Unknown]
  - Cranial nerve paralysis [Recovered/Resolved]
  - Central nervous system lymphoma [Recovered/Resolved]
  - Malignant neoplasm progression [Unknown]
  - Arthralgia [Recovered/Resolved]
  - Nausea [Recovered/Resolved]
  - Vomiting [Recovered/Resolved]
  - IIIrd nerve disorder [Recovered/Resolved]
  - Cranial nerve disorder [Recovered/Resolved]
  - Hypoaesthesia [Recovered/Resolved]
